FAERS Safety Report 4828500-0 (Version None)
Quarter: 2005Q4

REPORT INFORMATION
  Report Type: 
  Country: None (occurrence: None)
  Receive Date: 20051110
  Receipt Date: 20051028
  Transmission Date: 20060501
  Serious: No
  Sender: FDA-Public Use
  Company Number: 05-0132PO

PATIENT
  Age: 59 Year
  Sex: Male

DRUGS (5)
  1. MEFENAMIC ACID [Suspect]
     Indication: ILL-DEFINED DISORDER
     Dosage: ORAL
     Route: 048
     Dates: start: 20050901
  2. PLAVIX [Suspect]
     Indication: ILL-DEFINED DISORDER
     Dosage: 75 MG, ORAL
     Route: 048
  3. CARVEDILOL [Concomitant]
  4. OMEPRAZOLE [Concomitant]
  5. EFFEXOR [Concomitant]

REACTIONS (9)
  - ANAEMIA [None]
  - DRUG INTERACTION [None]
  - GASTRIC ULCER [None]
  - GASTRITIS [None]
  - GASTROINTESTINAL HAEMORRHAGE [None]
  - LOSS OF CONSCIOUSNESS [None]
  - MALAISE [None]
  - MOUTH HAEMORRHAGE [None]
  - SYNCOPE [None]
